FAERS Safety Report 4407205-4 (Version None)
Quarter: 2004Q3

REPORT INFORMATION
  Report Type: 
  Country: None (occurrence: None)
  Receive Date: 20040721
  Receipt Date: 20040706
  Transmission Date: 20050211
  Serious: Yes (Hospitalization, Other)
  Sender: FDA-Public Use
  Company Number: USA040771763

PATIENT
  Age: 71 Year
  Sex: Male
  Weight: 120 kg

DRUGS (3)
  1. HUMULIN N [Suspect]
     Indication: DIABETES MELLITUS
     Dosage: 80 U DAY
     Dates: start: 19840101
  2. HUMULIN R [Suspect]
     Indication: DIABETES MELLITUS
     Dates: start: 19840101
  3. INSULIN [Suspect]
     Indication: DIABETES MELLITUS
     Dates: start: 19790101, end: 19840101

REACTIONS (19)
  - AMMONIA INCREASED [None]
  - BALANCE DISORDER [None]
  - BLOOD GLUCOSE INCREASED [None]
  - CEREBROVASCULAR ACCIDENT [None]
  - CIRRHOSIS ALCOHOLIC [None]
  - DIFFICULTY IN WALKING [None]
  - FALL [None]
  - GASTROINTESTINAL HAEMORRHAGE [None]
  - HEPATITIS [None]
  - HYPERTENSION [None]
  - INSOMNIA [None]
  - NAUSEA [None]
  - NERVOUS SYSTEM DISORDER [None]
  - OEDEMA PERIPHERAL [None]
  - PAIN [None]
  - PRURITUS [None]
  - SWELLING [None]
  - TRANSIENT ISCHAEMIC ATTACK [None]
  - URINE ODOUR ABNORMAL [None]
